FAERS Safety Report 5424005-7 (Version None)
Quarter: 2007Q3

REPORT INFORMATION
  Report Type: 
  Country: None (occurrence: None)
  Receive Date: 20070727
  Receipt Date: 20061010
  Transmission Date: 20080115
  Serious: Yes (Hospitalization, Other)
  Sender: FDA-Public Use
  Company Number: THYM-11065

PATIENT
  Age: 20 Year
  Sex: Male
  Weight: 95.2554 kg

DRUGS (12)
  1. THYMOGLOBULIN [Suspect]
     Indication: RENAL TRANSPLANT
     Dosage: 125 MG QD IV
     Route: 042
     Dates: start: 20051227, end: 20051229
  2. THYMOGLOBULIN [Suspect]
     Indication: RENAL TRANSPLANT
     Dosage: 125 MG QD IV
     Route: 042
     Dates: start: 20060216, end: 20060222
  3. SOLU-MEDROL [Concomitant]
  4. PREDNISONE [Concomitant]
  5. MYCOPHENOLATE MOFETIL [Concomitant]
  6. TACROLIMUS [Concomitant]
  7. LOSARTAN POTASSIUM [Concomitant]
  8. AMLODIPNE [Concomitant]
  9. PRAVASTATIN [Concomitant]
  10. VALGANCICLOVIR HCL [Concomitant]
  11. NIZATIDINE [Concomitant]
  12. BACTRIM [Concomitant]

REACTIONS (2)
  - DIABETES MELLITUS [None]
  - KIDNEY TRANSPLANT REJECTION [None]
